FAERS Safety Report 5691430-9 (Version None)
Quarter: 2008Q2

REPORT INFORMATION
  Report Type: 
  Country: None (occurrence: None)
  Receive Date: 20080401
  Receipt Date: 20080401
  Transmission Date: 20081010
  Serious: Yes (Hospitalization)
  Sender: FDA-Public Use
  Company Number: None

PATIENT
  Age: 57 Year
  Sex: Male

DRUGS (2)
  1. GENTAMICIN [Suspect]
     Indication: OSTEOMYELITIS
     Dosage: 100MG EVERY DAY IV
     Route: 042
     Dates: start: 20061126, end: 20071209
  2. VANCOMYCIN [Suspect]
     Dosage: 1000MG EVERY DAY IV
     Route: 042
     Dates: start: 20071126, end: 20071209

REACTIONS (4)
  - DRUG LEVEL INCREASED [None]
  - RENAL FAILURE ACUTE [None]
  - SEDATION [None]
  - URINARY RETENTION [None]
